FAERS Safety Report 10426675 (Version 1)
Quarter: 2014Q3

REPORT INFORMATION
  Report Type: Spontaneous
  Country: US (occurrence: US)
  Receive Date: 20140903
  Receipt Date: 20140903
  Transmission Date: 20150326
  Serious: No
  Sender: FDA-Public Use
  Company Number: US-BANPHARM-20131584

PATIENT
  Age: 84 Year
  Sex: Male
  Weight: 81.65 kg

DRUGS (3)
  1. ZYRTEC [Suspect]
     Active Substance: CETIRIZINE HYDROCHLORIDE
     Indication: ECZEMA
     Dosage: 1 DF, QD,
     Route: 048
     Dates: start: 20130729, end: 20130808
  2. CHOLESTEROL LOWERING MEDICATION [Concomitant]
  3. ANTIHYPERTENSIVE MEDICATION [Concomitant]

REACTIONS (2)
  - Drug ineffective [Unknown]
  - Drug ineffective for unapproved indication [Unknown]
